FAERS Safety Report 17610064 (Version 1)
Quarter: 2020Q1

REPORT INFORMATION
  Report Type: Spontaneous
  Country: US (occurrence: US)
  Receive Date: 20200330
  Receipt Date: 20200330
  Transmission Date: 20200409
  Serious: Yes (Hospitalization)
  Sender: FDA-Public Use
  Company Number: None

PATIENT
  Sex: Female

DRUGS (1)
  1. CYRAMZA [Suspect]
     Active Substance: RAMUCIRUMAB
     Indication: GASTRIC CANCER
     Dosage: ?          OTHER STRENGTH:100MG/10ML;OTHER FREQUENCY:EVERY 2 WEEKS;?
     Dates: start: 20191217

REACTIONS (2)
  - Fall [None]
  - Hospice care [None]
